FAERS Safety Report 10802792 (Version 1)
Quarter: 2015Q1

REPORT INFORMATION
  Report Type: Spontaneous
  Country: CA (occurrence: CA)
  Receive Date: 20150217
  Receipt Date: 20150217
  Transmission Date: 20150721
  Serious: Yes (Other)
  Sender: FDA-Public Use
  Company Number: CA-GILEAD-2015-0137364

PATIENT
  Age: 74 Year
  Sex: Female

DRUGS (9)
  1. TECTA [Concomitant]
     Active Substance: PANTOPRAZOLE MAGNESIUM
  2. ZOPLICONE [Concomitant]
     Active Substance: ZOPICLONE
  3. AMBRISENTAN [Suspect]
     Active Substance: AMBRISENTAN
     Indication: PULMONARY ARTERIAL HYPERTENSION
     Dosage: 5 MG, QD
     Route: 048
     Dates: start: 20140510, end: 20150201
  4. SALBUTAMOL [Concomitant]
     Active Substance: ALBUTEROL
  5. MOMETASONE [Concomitant]
     Active Substance: MOMETASONE
  6. AMITRIPTYLINE [Concomitant]
     Active Substance: AMITRIPTYLINE
  7. AMBRISENTAN [Suspect]
     Active Substance: AMBRISENTAN
     Dosage: 5 UNK, UNK
     Route: 048
     Dates: start: 20150205
  8. AMPICILLIN [Suspect]
     Active Substance: AMPICILLIN
     Indication: PRODUCT USED FOR UNKNOWN INDICATION
     Dosage: UNK
     Route: 054
     Dates: start: 2015
  9. DICETEL [Concomitant]
     Active Substance: PINAVERIUM BROMIDE

REACTIONS (6)
  - Drug interaction [Unknown]
  - Tooth disorder [Unknown]
  - Drug intolerance [Unknown]
  - Abdominal discomfort [Unknown]
  - Abdominal pain upper [Unknown]
  - Helminthic infection [Unknown]

NARRATIVE: CASE EVENT DATE: 2015
